FAERS Safety Report 5154077-9 (Version None)
Quarter: 2006Q4

REPORT INFORMATION
  Report Type: 
  Country: None (occurrence: None)
  Receive Date: 20061116
  Receipt Date: 20061116
  Transmission Date: 20070319
  Serious: Yes (Other)
  Sender: FDA-Public Use
  Company Number: None

PATIENT
  Age: 34 Year
  Sex: Female
  Weight: 55.3388 kg

DRUGS (3)
  1. NALBUPHINE HCL [Suspect]
     Indication: BURN DEBRIDEMENT
     Dosage: 10 MG X1 IM
     Route: 030
     Dates: start: 20061115, end: 20061115
  2. NALBUPHINE HCL [Suspect]
     Indication: BURNS SECOND DEGREE
     Dosage: 10 MG X1 IM
     Route: 030
     Dates: start: 20061115, end: 20061115
  3. NALBUPHINE HCL [Suspect]
     Indication: PAIN
     Dosage: 10 MG X1 IM
     Route: 030
     Dates: start: 20061115, end: 20061115

REACTIONS (8)
  - DEPRESSED LEVEL OF CONSCIOUSNESS [None]
  - DIZZINESS [None]
  - HEADACHE [None]
  - LOSS OF CONSCIOUSNESS [None]
  - SEDATION [None]
  - SYNCOPE VASOVAGAL [None]
  - THERAPY NON-RESPONDER [None]
  - VOMITING [None]
